FAERS Safety Report 17954212 (Version 1)
Quarter: 2020Q2

REPORT INFORMATION
  Report Type: Report from Study
  Country: None (occurrence: US)
  Receive Date: 20200629
  Receipt Date: 20200629
  Transmission Date: 20200714
  Serious: Yes (Hospitalization)
  Sender: FDA-Public Use
  Company Number: US-ABBVIE-20K-163-3459476-00

PATIENT
  Age: 20 Year
  Sex: Male

DRUGS (2)
  1. HUMIRA [Suspect]
     Active Substance: ADALIMUMAB
     Indication: CROHN^S DISEASE
     Route: 058
     Dates: start: 20200605, end: 20200615
  2. HUMIRA [Suspect]
     Active Substance: ADALIMUMAB
     Indication: INTESTINAL OBSTRUCTION

REACTIONS (1)
  - Intestinal obstruction [Recovering/Resolving]

NARRATIVE: CASE EVENT DATE: 20200619
